FAERS Safety Report 16399955 (Version 1)
Quarter: 2019Q2

REPORT INFORMATION
  Report Type: Report from Study
  Country: US (occurrence: US)
  Receive Date: 20190606
  Receipt Date: 20190606
  Transmission Date: 20190711
  Serious: Yes (Other)
  Sender: FDA-Public Use
  Company Number: US-TESARO-2019-TSO00852-US

PATIENT
  Age: 79 Year
  Sex: Female

DRUGS (4)
  1. ZEJULA [Suspect]
     Active Substance: NIRAPARIB
     Dosage: 200 MG 8:30 PM WITHOUT FOOD
     Dates: start: 20190308, end: 20190327
  2. ZEJULA [Suspect]
     Active Substance: NIRAPARIB
     Dosage: 200 MG, QD MISSING 2 DOSES EVERY WEEK
     Route: 048
     Dates: start: 20180330
  3. ZEJULA [Suspect]
     Active Substance: NIRAPARIB
     Indication: OVARIAN CANCER
     Dosage: 200 MG, QPM (8:30) WITHOUT FOOD
     Route: 048
     Dates: start: 201812, end: 20190327
  4. ZEJULA [Suspect]
     Active Substance: NIRAPARIB
     Dosage: 200 MG 8:30 PM WITHOUT FOOD

REACTIONS (13)
  - Asthenia [Unknown]
  - Dyspepsia [Recovering/Resolving]
  - Fatigue [Not Recovered/Not Resolved]
  - Diarrhoea [Not Recovered/Not Resolved]
  - Red blood cell count decreased [Unknown]
  - Respiratory distress [Unknown]
  - Taste disorder [Recovering/Resolving]
  - Product dose omission [Unknown]
  - Hypersensitivity [Recovering/Resolving]
  - Nausea [Recovered/Resolved]
  - Haemoglobin decreased [Unknown]
  - Haematocrit decreased [Unknown]
  - Headache [Recovering/Resolving]

NARRATIVE: CASE EVENT DATE: 20190328
